FAERS Safety Report 4874437-0 (Version None)
Quarter: 2006Q1

REPORT INFORMATION
  Report Type: 
  Country: None (occurrence: None)
  Receive Date: 20060106
  Receipt Date: 20050919
  Transmission Date: 20060701
  Serious: Yes (Other)
  Sender: FDA-Public Use
  Company Number: US-ROCHE-418315

PATIENT
  Age: 57 Year
  Sex: Female
  Weight: 68.9 kg

DRUGS (1)
  1. BONIVA [Suspect]
     Indication: DRUG USE FOR UNKNOWN INDICATION
     Route: 048
     Dates: start: 20050601, end: 20050701

REACTIONS (1)
  - ERYTHEMA NODOSUM [None]
